FAERS Safety Report 4698608-1 (Version None)
Quarter: 2005Q2

REPORT INFORMATION
  Report Type: 
  Country: None (occurrence: None)
  Receive Date: 20050623
  Receipt Date: 20040812
  Transmission Date: 20051028
  Serious: Yes (Hospitalization)
  Sender: FDA-Public Use
  Company Number: NUBN20040013

PATIENT
  Age: 75 Year
  Sex: Male

DRUGS (7)
  1. NUBAIN [Suspect]
     Dosage: 20 MG 6/DAY IV
     Route: 042
     Dates: start: 20040620, end: 20040620
  2. CIFLOX [Concomitant]
  3. INSULIN [Concomitant]
  4. XATRAL [Concomitant]
  5. CORDARONE [Concomitant]
  6. OMEPRAZOLE [Concomitant]
  7. ARANESP [Concomitant]

REACTIONS (1)
  - URTICARIA [None]
